FAERS Safety Report 14993847 (Version 1)
Quarter: 2018Q2

REPORT INFORMATION
  Report Type: Report from Study
  Country: None (occurrence: US)
  Receive Date: 20180611
  Receipt Date: 20180611
  Transmission Date: 20180711
  Serious: Yes (Other)
  Sender: FDA-Public Use
  Company Number: US-ABBVIE-18K-163-2370911-00

PATIENT
  Age: 64 Year
  Sex: Male

DRUGS (1)
  1. HUMIRA [Suspect]
     Active Substance: ADALIMUMAB
     Indication: RHEUMATOID ARTHRITIS
     Route: 058

REACTIONS (5)
  - Initial insomnia [Unknown]
  - Anaesthetic complication [Unknown]
  - Fatigue [Unknown]
  - Bipolar disorder [Unknown]
  - Suicidal ideation [Recovering/Resolving]

NARRATIVE: CASE EVENT DATE: 201801
